FAERS Safety Report 10228165 (Version 1)
Quarter: 2014Q2

REPORT INFORMATION
  Report Type: Spontaneous
  Country: US (occurrence: None)
  Receive Date: 20140609
  Receipt Date: 20140609
  Transmission Date: 20141212
  Serious: Yes (Hospitalization, Disabling)
  Sender: FDA-Public Use
  Company Number: None

PATIENT
  Age: 34 Year
  Sex: Female
  Weight: 68.04 kg

DRUGS (1)
  1. ZICAM ALLERGY RELIEF NASAL GEL SULPHUR 12X, 30X, 200X MATRIXX [Suspect]
     Indication: SEASONAL ALLERGY
     Dosage: 1 PUMP INTO EACH NOSTRIL ONCE DAILY INHALATION
     Route: 055
     Dates: start: 20140531, end: 20140531

REACTIONS (1)
  - Anosmia [None]
